FAERS Safety Report 9697728 (Version 2)
Quarter: 2013Q4

REPORT INFORMATION
  Report Type: Spontaneous
  Country: US (occurrence: US)
  Receive Date: 20131120
  Receipt Date: 20131120
  Transmission Date: 20140711
  Serious: No
  Sender: FDA-Public Use
  Company Number: US-PFIZER INC-2013312701

PATIENT
  Age: 77 Year
  Sex: Male
  Weight: 109 kg

DRUGS (2)
  1. LYRICA [Suspect]
     Indication: NEUROPATHY PERIPHERAL
     Dosage: 100 MG, 2X/DAY
  2. LYRICA [Suspect]
     Indication: HYPOAESTHESIA
     Dosage: 150 MG, 3X/DAY

REACTIONS (7)
  - Off label use [Unknown]
  - Burning sensation [Unknown]
  - Flushing [Unknown]
  - Drug ineffective [Unknown]
  - Musculoskeletal disorder [Unknown]
  - Limb discomfort [Unknown]
  - Drug dispensing error [Unknown]
